FAERS Safety Report 8406166-0 (Version None)
Quarter: 2012Q2

REPORT INFORMATION
  Report Type: 
  Country: None (occurrence: None)
  Receive Date: 20120323
  Receipt Date: 20110816
  Transmission Date: 20120825
  Serious: Yes (Hospitalization)
  Sender: FDA-Public Use
  Company Number: 163-21880-11052512

PATIENT
  Age: 72 Year
  Sex: Female
  Weight: 64.8644 kg

DRUGS (28)
  1. CYMBALTA [Concomitant]
  2. EVOXAC [Concomitant]
  3. ASPIRIN [Concomitant]
  4. CALTRATE + D (LEKOVIT CA) [Concomitant]
  5. VITAMIN B12 [Concomitant]
  6. MULTI-VITAMINS [Concomitant]
  7. CHROMIUM CHLORIDE [Concomitant]
  8. FIORICET [Concomitant]
  9. LYRICA [Concomitant]
  10. HYDROCODONE/APAP (PROCET) [Concomitant]
  11. METFORMIN HCL [Concomitant]
  12. PREVACID [Concomitant]
  13. BYETTA [Concomitant]
  14. FLORASTOR (SACCHAROMYCES BOULARDII) [Concomitant]
  15. MIRALAX [Concomitant]
  16. OXYCONTIN [Concomitant]
  17. RECLAST [Concomitant]
  18. ASCORBIC ACID [Concomitant]
  19. STOOL SOFTENER (DUCUSATE SODIUM) [Concomitant]
  20. LIPITOR [Concomitant]
  21. CELEBREX [Concomitant]
  22. GAVISCON [Concomitant]
  23. CITRUCEL (METHYLCELLULOSE) [Concomitant]
  24. REVLIMID [Suspect]
     Indication: MULTIPLE MYELOMA
     Dosage: 5 MG, DAILY X 28 DAYS, PO
     Route: 048
     Dates: start: 20100505, end: 20110404
  25. CITRACAL (CALCIUM CITRATE) [Concomitant]
  26. VITAMIN D [Concomitant]
  27. FUROSEMIDE [Concomitant]
  28. CHROMIUM PICOLINATE [Concomitant]

REACTIONS (1)
  - PNEUMONIA [None]
